FAERS Safety Report 15678165 (Version 3)
Quarter: 2019Q1

REPORT INFORMATION
  Report Type: Spontaneous
  Country: BE (occurrence: BE)
  Receive Date: 20181201
  Receipt Date: 20190211
  Transmission Date: 20190417
  Serious: Yes (Other)
  Sender: FDA-Public Use
  Company Number: BE-AMGEN-BELSP2018171200

PATIENT
  Age: 67 Year
  Sex: Female
  Weight: 53 kg

DRUGS (2)
  1. PROLIA [Suspect]
     Active Substance: DENOSUMAB
     Indication: OSTEOPOROSIS POSTMENOPAUSAL
     Dosage: 60 MG, Q6MO
     Route: 058
     Dates: start: 2011, end: 201705
  2. CALCIUM+VIT D [Concomitant]
     Dosage: UNK

REACTIONS (1)
  - Spinal fracture [Unknown]

NARRATIVE: CASE EVENT DATE: 201803
